FAERS Safety Report 16150360 (Version 1)
Quarter: 2019Q2

REPORT INFORMATION
  Report Type: Spontaneous
  Country: CL (occurrence: CL)
  Receive Date: 20190403
  Receipt Date: 20190403
  Transmission Date: 20190711
  Serious: Yes (Hospitalization, Other)
  Sender: FDA-Public Use
  Company Number: CL-BAYER-2019-049773

PATIENT
  Sex: Female

DRUGS (2)
  1. MIRENA [Suspect]
     Active Substance: LEVONORGESTREL
     Dosage: 20 MCG/24HR, CONT
     Route: 015
     Dates: start: 2004
  2. MIRENA [Suspect]
     Active Substance: LEVONORGESTREL

REACTIONS (7)
  - Uterine pain [Unknown]
  - Drug ineffective [None]
  - Pelvic pain [Unknown]
  - Ectopic pregnancy with contraceptive device [None]
  - Ectopic pregnancy termination [None]
  - Pain [Unknown]
  - Uterine neoplasm [Unknown]

NARRATIVE: CASE EVENT DATE: 2008
